FAERS Safety Report 8786195 (Version 1)
Quarter: 2012Q4

REPORT INFORMATION
  Report Type: 
  Country: US (occurrence: US)
  Receive Date: 20120914
  Receipt Date: 20120914
  Transmission Date: 20130627
  Serious: Yes (Other)
  Sender: FDA-Public Use
  Company Number: PHHO2012US013096

PATIENT
  Age: 59 Year
  Sex: Female
  Weight: 106.5 kg

DRUGS (3)
  1. ZOLEDRONATE [Suspect]
     Indication: BREAST CANCER
     Dosage: 4 mg, every one month for 6 months then every 3 months
     Route: 042
     Dates: start: 20100126, end: 20120306
  2. FEMARA [Concomitant]
  3. ANTIBIOTICS [Concomitant]

REACTIONS (1)
  - Osteonecrosis of jaw [Recovering/Resolving]
